FAERS Safety Report 4593875-7 (Version None)
Quarter: 2005Q1

REPORT INFORMATION
  Report Type: 
  Country: None (occurrence: None)
  Receive Date: 20050217
  Receipt Date: 20050208
  Transmission Date: 20050727
  Serious: Yes (Hospitalization)
  Sender: FDA-Public Use
  Company Number: 2004-03221

PATIENT
  Age: 59 Year
  Sex: Male

DRUGS (1)
  1. IMMUCYST          (BCG - IT  (CONNAUGHT) [Suspect]
     Indication: BLADDER CANCER
     Dosage: IN., BLADDER

REACTIONS (7)
  - AORTIC VALVE INCOMPETENCE [None]
  - BOVINE TUBERCULOSIS [None]
  - DISSEMINATED TUBERCULOSIS [None]
  - EMPHYSEMA [None]
  - HEPATIC STEATOSIS [None]
  - HEPATITIS CHOLESTATIC [None]
  - MITRAL VALVE INCOMPETENCE [None]
